FAERS Safety Report 9610383 (Version 2)
Quarter: 2013Q4

REPORT INFORMATION
  Report Type: Spontaneous
  Country: US (occurrence: US)
  Receive Date: 20131009
  Receipt Date: 20131009
  Transmission Date: 20140711
  Serious: Yes (Other)
  Sender: FDA-Public Use
  Company Number: US-NAPPMUNDI-USA-2012-0096941

PATIENT
  Sex: Male
  Weight: 98.41 kg

DRUGS (2)
  1. BUTRANS [Suspect]
     Indication: PAIN
     Dosage: 20 MCG, Q1H
     Route: 062
     Dates: start: 20121214, end: 20130121
  2. BUTRANS [Suspect]
     Indication: COMPLEX REGIONAL PAIN SYNDROME

REACTIONS (5)
  - Hallucination [Recovered/Resolved]
  - Sedation [Recovered/Resolved]
  - Skin reaction [Recovered/Resolved]
  - Intentional drug misuse [Unknown]
  - Euphoric mood [Unknown]
